FAERS Safety Report 8410244-X (Version None)
Quarter: 2012Q2

REPORT INFORMATION
  Report Type: 
  Country: None (occurrence: None)
  Receive Date: 20120605
  Receipt Date: 20120531
  Transmission Date: 20120825
  Serious: Yes (Death)
  Sender: FDA-Public Use
  Company Number: PHEH2012US011233

PATIENT
  Sex: Male

DRUGS (11)
  1. METRONIDAZOLE [Concomitant]
  2. DIVALPROEX SODIUM [Concomitant]
  3. GABAPENTIN [Concomitant]
  4. AMLODIPINE [Concomitant]
  5. TAMSULOSIN HCL [Concomitant]
  6. METFORMIN HCL [Concomitant]
  7. FINASTERIDE [Concomitant]
  8. CHOLESTYRAMINE [Concomitant]
  9. CARVEDILOL [Concomitant]
  10. TASIGNA [Suspect]
     Indication: CHRONIC MYELOID LEUKAEMIA
     Dosage: 200 MG, BID
     Route: 048
     Dates: start: 20100312, end: 20120522
  11. LISINOPRIL [Concomitant]

REACTIONS (1)
  - DEATH [None]
